FAERS Safety Report 6701130-1 (Version None)
Quarter: 2010Q2

REPORT INFORMATION
  Report Type: 
  Country: None (occurrence: None)
  Receive Date: 20100428
  Receipt Date: 20100428
  Transmission Date: 20101027
  Serious: No
  Sender: FDA-Public Use
  Company Number: None

PATIENT
  Age: 55 Year
  Sex: Male
  Weight: 74.8435 kg

DRUGS (1)
  1. ZOLOFT [Suspect]
     Indication: POST-TRAUMATIC STRESS DISORDER
     Dosage: ONE TABLET  2TIMES A DAY BUCCAL
     Route: 002
     Dates: start: 20080410, end: 20091219

REACTIONS (15)
  - ANXIETY [None]
  - DISORIENTATION [None]
  - DISTURBANCE IN ATTENTION [None]
  - HEAD INJURY [None]
  - IMPAIRED DRIVING ABILITY [None]
  - IMPAIRED WORK ABILITY [None]
  - LIBIDO DECREASED [None]
  - LOSS OF CONSCIOUSNESS [None]
  - MEMORY IMPAIRMENT [None]
  - MYALGIA [None]
  - NEUROPSYCHOLOGICAL TEST ABNORMAL [None]
  - NIGHT SWEATS [None]
  - NIGHTMARE [None]
  - SOCIAL AVOIDANT BEHAVIOUR [None]
  - VICTIM OF CRIME [None]
